FAERS Safety Report 4514118-6 (Version None)
Quarter: 2004Q4

REPORT INFORMATION
  Report Type: 
  Country: None (occurrence: None)
  Receive Date: 20041124
  Receipt Date: 20041115
  Transmission Date: 20050328
  Serious: Yes (Hospitalization, Other)
  Sender: FDA-Public Use
  Company Number: CIP04002428

PATIENT
  Age: 78 Year
  Sex: Female

DRUGS (5)
  1. BENET(RISEDRONATE SODIUM) TABLET, 2.5MG [Suspect]
     Indication: OSTEOPOROSIS
     Dosage: 2.5 MG 1 PER 3 OR 4 DAYS, ORAL
     Route: 048
     Dates: start: 20031101, end: 20041001
  2. METHYCOBAL (MECOBALAMIN) [Concomitant]
  3. ONE-ALPHA (ALFACALCIDOL) [Concomitant]
  4. DIAZEPAM [Concomitant]
  5. GASTER (FAMOTIDINE) [Concomitant]

REACTIONS (6)
  - ALANINE AMINOTRANSFERASE INCREASED [None]
  - ASPARTATE AMINOTRANSFERASE INCREASED [None]
  - CHOLELITHIASIS [None]
  - DYSPEPSIA [None]
  - GASTROINTESTINAL DISORDER [None]
  - LIVER FUNCTION TEST ABNORMAL [None]
